FAERS Safety Report 21849421 (Version 5)
Quarter: 2024Q1

REPORT INFORMATION
  Report Type: Spontaneous
  Country: US (occurrence: US)
  Receive Date: 20230111
  Receipt Date: 20240307
  Transmission Date: 20240409
  Serious: Yes (Other)
  Sender: FDA-Public Use
  Company Number: US-PFIZER INC-202200827819

PATIENT
  Age: 79 Year
  Sex: Male

DRUGS (1)
  1. BOSULIF [Suspect]
     Active Substance: BOSUTINIB MONOHYDRATE
     Indication: Chronic myeloid leukaemia
     Dosage: 1 TABLET, TAKE AS DIRECTED
     Route: 048

REACTIONS (5)
  - Staphylococcal infection [Unknown]
  - Neoplasm progression [Unknown]
  - Hypoacusis [Unknown]
  - Frequent bowel movements [Recovering/Resolving]
  - Abdominal pain upper [Unknown]

NARRATIVE: CASE EVENT DATE: 20220101
